FAERS Safety Report 16456221 (Version 1)
Quarter: 2019Q2

REPORT INFORMATION
  Report Type: Report from Study
  Country: CO (occurrence: CO)
  Receive Date: 20190620
  Receipt Date: 20190620
  Transmission Date: 20190711
  Serious: Yes (Hospitalization)
  Sender: FDA-Public Use
  Company Number: PHHY2018CO067011

PATIENT
  Sex: Female
  Weight: 72 kg

DRUGS (5)
  1. TASIGNA [Suspect]
     Active Substance: NILOTINIB
     Dosage: 2 DF, BID (2 CAPSULES OF 200MG AT 5AM IN THE MORNING AND 2 CAPSULES OF 200 MG AT 5PM IN AFTERNOON)
     Route: 048
  2. TASIGNA [Suspect]
     Active Substance: NILOTINIB
     Indication: CHRONIC MYELOID LEUKAEMIA
     Dosage: 800 MG, QD
     Route: 048
  3. ESOMEPRAZOL [Concomitant]
     Active Substance: ESOMEPRAZOLE
     Indication: GASTRITIS
     Dosage: 40 MG, QD
     Route: 065
  4. TASIGNA [Suspect]
     Active Substance: NILOTINIB
     Dosage: 800 MG, QD
     Route: 048
  5. TASIGNA [Suspect]
     Active Substance: NILOTINIB
     Dosage: 800 MG, QD
     Route: 048
     Dates: start: 20180101

REACTIONS (24)
  - White blood cell count increased [Unknown]
  - Malaise [Unknown]
  - Pain [Unknown]
  - Diarrhoea [Unknown]
  - Product prescribing error [Unknown]
  - Abdominal pain [Unknown]
  - Depressed mood [Unknown]
  - Joint swelling [Unknown]
  - Headache [Unknown]
  - Inappropriate schedule of product administration [Unknown]
  - Amoebiasis [Unknown]
  - Back pain [Unknown]
  - Blood pressure increased [Unknown]
  - Alopecia [Not Recovered/Not Resolved]
  - Arthralgia [Unknown]
  - Nausea [Unknown]
  - Somnolence [Unknown]
  - Platelet count decreased [Unknown]
  - Gastrointestinal infection [Unknown]
  - Intervertebral disc degeneration [Unknown]
  - Diverticulum [Unknown]
  - Pain in extremity [Unknown]
  - Peripheral swelling [Unknown]
  - Fatigue [Unknown]
